FAERS Safety Report 4511527-6 (Version None)
Quarter: 2004Q4

REPORT INFORMATION
  Report Type: 
  Country: None (occurrence: None)
  Receive Date: 20041129
  Receipt Date: 20040910
  Transmission Date: 20050328
  Serious: No
  Sender: FDA-Public Use
  Company Number: US-BRISTOL-MYERS SQUIBB COMPANY-12699492

PATIENT
  Age: 45 Year
  Sex: Female

DRUGS (4)
  1. ABILIFY [Suspect]
     Indication: SCHIZOPHRENIA
     Route: 048
     Dates: start: 20040301
  2. ZYPREXA [Concomitant]
  3. ATIVAN [Concomitant]
  4. NORVASC [Concomitant]

REACTIONS (5)
  - HYPERSENSITIVITY [None]
  - NASOPHARYNGITIS [None]
  - PARANASAL SINUS HYPERSECRETION [None]
  - SCHIZOPHRENIA [None]
  - WEIGHT DECREASED [None]
